FAERS Safety Report 6476689-2 (Version None)
Quarter: 2009Q4

REPORT INFORMATION
  Report Type: 
  Country: None (occurrence: None)
  Receive Date: 20091207
  Receipt Date: 20091125
  Transmission Date: 20100525
  Serious: Yes (Death, Life-Threatening, Hospitalization)
  Sender: FDA-Public Use
  Company Number: SE-MILLENNIUM PHARMACEUTICALS, INC.-2009-04943

PATIENT

DRUGS (6)
  1. VELCADE [Suspect]
     Indication: MULTIPLE MYELOMA
     Dosage: 2.6 MG, CYCLIC
     Route: 042
     Dates: start: 20081204, end: 20090319
  2. VELCADE [Suspect]
     Dosage: 2.6 MG, CYCLIC
     Route: 042
     Dates: start: 20090701, end: 20090814
  3. PREDNISONE [Suspect]
     Indication: MULTIPLE MYELOMA
     Dosage: 1600 MG, UNK
     Route: 048
     Dates: start: 20090701, end: 20090701
  4. PREDNISONE [Suspect]
     Dosage: 1600 MG, UNK
     Route: 042
     Dates: start: 20090702, end: 20090720
  5. PREDNISONE [Suspect]
     Dosage: 1600 MG, UNK
     Route: 048
     Dates: start: 20090721, end: 20090814
  6. PREDNISONE [Concomitant]
     Dosage: UNK
     Dates: start: 20090102, end: 20090702

REACTIONS (2)
  - GASTROINTESTINAL HAEMORRHAGE [None]
  - RENAL FAILURE [None]
